FAERS Safety Report 8643411 (Version 2)
Quarter: 2012Q4

REPORT INFORMATION
  Report Type: 
  Country: US (occurrence: US)
  Receive Date: 20120629
  Receipt Date: 20121227
  Transmission Date: 20130627
  Serious: Yes (Hospitalization)
  Sender: FDA-Public Use
  Company Number: US-BAYER-2012-062414

PATIENT
  Age: 50 Year
  Sex: Female

DRUGS (4)
  1. YAZ [Suspect]
     Indication: PREMENOPAUSAL SYMPTOMS
     Dosage: UNK
     Dates: end: 20101121
  2. CIPROFLOXACIN [Concomitant]
     Dosage: 250 mg, UNK
     Route: 048
  3. PHENAZOPYRIDINE [Concomitant]
     Dosage: 100 mg, UNK
     Route: 048
  4. LISINOPRIL [Concomitant]
     Indication: HYPERTENSION
     Dosage: 10 mg, UNK
     Route: 048

REACTIONS (2)
  - Deep vein thrombosis [Recovered/Resolved]
  - Pelvic venous thrombosis [None]
